FAERS Safety Report 19416285 (Version 1)
Quarter: 2021Q2

REPORT INFORMATION
  Report Type: Spontaneous
  Country: US (occurrence: US)
  Receive Date: 20210615
  Receipt Date: 20210615
  Transmission Date: 20210717
  Serious: No
  Sender: FDA-Public Use
  Company Number: US-ALLERGAN-2101888US

PATIENT
  Age: 42 Year
  Sex: Female

DRUGS (2)
  1. VITAMINS                           /00067501/ [Concomitant]
     Active Substance: VITAMINS
  2. KYBELLA [Suspect]
     Active Substance: DEOXYCHOLIC ACID
     Indication: LIPOLYSIS PROCEDURE
     Dosage: 2 ML, SINGLE
     Route: 058
     Dates: start: 20201112, end: 20201112

REACTIONS (1)
  - Injection site nodule [Recovering/Resolving]

NARRATIVE: CASE EVENT DATE: 2020
